FAERS Safety Report 8210942-7 (Version None)
Quarter: 2012Q1

REPORT INFORMATION
  Report Type: 
  Country: None (occurrence: None)
  Receive Date: 20120315
  Receipt Date: 20120308
  Transmission Date: 20120608
  Serious: Yes (Other)
  Sender: FDA-Public Use
  Company Number: US-BAYER-2012-023820

PATIENT
  Sex: Female

DRUGS (2)
  1. YAZ [Suspect]
     Dosage: UNK
     Dates: start: 20080201
  2. YASMIN [Suspect]
     Dosage: UNK
     Dates: start: 20080201

REACTIONS (1)
  - DEEP VEIN THROMBOSIS [None]
